FAERS Safety Report 23867462 (Version 2)
Quarter: 2024Q2

REPORT INFORMATION
  Report Type: Spontaneous
  Country: US (occurrence: US)
  Receive Date: 20240517
  Receipt Date: 20240606
  Transmission Date: 20240716
  Serious: No
  Sender: FDA-Public Use
  Company Number: US-002147023-NVSC2024US099756

PATIENT
  Sex: Female

DRUGS (1)
  1. MEKINIST [Suspect]
     Active Substance: TRAMETINIB DIMETHYL SULFOXIDE
     Indication: Histiocytosis
     Dosage: 0.6 ML, QD (ORAL SOLUTION)
     Route: 048
     Dates: start: 202312

REACTIONS (5)
  - Bladder dilatation [Unknown]
  - Visual impairment [Unknown]
  - Hair colour changes [Unknown]
  - Alopecia [Unknown]
  - Off label use [Unknown]
